FAERS Safety Report 4683788-4 (Version None)
Quarter: 2005Q2

REPORT INFORMATION
  Report Type: 
  Country: None (occurrence: None)
  Receive Date: 20050602
  Receipt Date: 20050407
  Transmission Date: 20051028
  Serious: No
  Sender: FDA-Public Use
  Company Number: USA050495125

PATIENT
  Age: 86 Year
  Sex: Female

DRUGS (4)
  1. CYMBALTA [Suspect]
     Indication: NEUROPATHY PERIPHERAL
     Dosage: 60 MG AT BEDTIME
     Dates: start: 20050301
  2. VERAPAMIL [Concomitant]
  3. NEURONTIN (GABAPENTIN PFIZER) [Concomitant]
  4. ZOCOR (SIMVASTATIN RATIOPHARM) [Concomitant]

REACTIONS (3)
  - COGNITIVE DISORDER [None]
  - MEMORY IMPAIRMENT [None]
  - PAIN [None]
